FAERS Safety Report 18591164 (Version 1)
Quarter: 2020Q4

REPORT INFORMATION
  Report Type: Spontaneous
  Country: US (occurrence: US)
  Receive Date: 20201208
  Receipt Date: 20201208
  Transmission Date: 20210114
  Serious: Yes (Death)
  Sender: FDA-Public Use
  Company Number: US-SA-2020SA350035

PATIENT

DRUGS (2)
  1. TOUJEO MAX [Suspect]
     Active Substance: INSULIN GLARGINE
     Indication: DIABETES MELLITUS
     Dosage: 77 IU, BID
     Route: 065
  2. HUMULIN R [Concomitant]
     Active Substance: INSULIN HUMAN
     Dosage: 50 IU, TID
     Route: 065

REACTIONS (2)
  - Inappropriate schedule of product administration [Unknown]
  - COVID-19 [Fatal]

NARRATIVE: CASE EVENT DATE: 20201128
